FAERS Safety Report 10787649 (Version 1)
Quarter: 2015Q1

REPORT INFORMATION
  Report Type: Report from Study
  Country: US (occurrence: US)
  Receive Date: 20150212
  Receipt Date: 20150212
  Transmission Date: 20150721
  Serious: No
  Sender: FDA-Public Use
  Company Number: US-AMGEN-USASL2015011837

PATIENT
  Age: 47 Year
  Sex: Male
  Weight: 86.17 kg

DRUGS (1)
  1. ENBREL [Suspect]
     Active Substance: ETANERCEPT
     Indication: RHEUMATOID ARTHRITIS
     Dosage: 50 MG, Q7DAYS
     Route: 058
     Dates: start: 2014

REACTIONS (7)
  - Headache [Unknown]
  - Eye irritation [Unknown]
  - Asthenopia [Unknown]
  - Tinnitus [Unknown]
  - Muscle twitching [Unknown]
  - Visual impairment [Unknown]
  - Ear congestion [Unknown]

NARRATIVE: CASE EVENT DATE: 2015
